FAERS Safety Report 14542361 (Version 1)
Quarter: 2018Q1

REPORT INFORMATION
  Report Type: Spontaneous
  Country: US (occurrence: US)
  Receive Date: 20180216
  Receipt Date: 20180216
  Transmission Date: 20180509
  Serious: Yes (Other)
  Sender: FDA-Public Use
  Company Number: US-OTSUKA-DJ20125558

PATIENT

DRUGS (1)
  1. ABILIFY [Suspect]
     Active Substance: ARIPIPRAZOLE
     Indication: DEPRESSION
     Route: 065
     Dates: start: 20120709, end: 20120718

REACTIONS (2)
  - Bruxism [Unknown]
  - Mania [Unknown]

NARRATIVE: CASE EVENT DATE: 201207
